FAERS Safety Report 12589105 (Version 2)
Quarter: 2016Q3

REPORT INFORMATION
  Report Type: Report from Study
  Country: BR (occurrence: BR)
  Receive Date: 20160725
  Receipt Date: 20160725
  Transmission Date: 20161109
  Serious: Yes (Other)
  Sender: FDA-Public Use
  Company Number: PHHY2016BR098169

PATIENT
  Sex: Male
  Weight: 78 kg

DRUGS (1)
  1. OMNITROPE [Suspect]
     Active Substance: SOMATROPIN
     Indication: BODY HEIGHT BELOW NORMAL
     Dosage: 2.2 MG, QD
     Route: 058
     Dates: start: 201410, end: 20160610

REACTIONS (1)
  - Appendicitis [Unknown]
